FAERS Safety Report 10983651 (Version 1)
Quarter: 2015Q2

REPORT INFORMATION
  Report Type: Spontaneous
  Country: US (occurrence: None)
  Receive Date: 20150402
  Receipt Date: 20150402
  Transmission Date: 20150821
  Serious: Yes (Hospitalization, Other)
  Sender: FDA-Public Use
  Company Number: None

PATIENT
  Age: 86 Year
  Sex: Female

DRUGS (1)
  1. OMEPRAZOLE 20 MG [Suspect]
     Active Substance: OMEPRAZOLE
     Indication: GASTROOESOPHAGEAL REFLUX DISEASE
     Dosage: ONE, ONCE DAILY, TAKEN BY MOUTH
     Route: 048
     Dates: start: 20150328, end: 20150401

REACTIONS (3)
  - Hyperhidrosis [None]
  - Palpitations [None]
  - Product quality issue [None]

NARRATIVE: CASE EVENT DATE: 20150328
